FAERS Safety Report 14752097 (Version 1)
Quarter: 2018Q2

REPORT INFORMATION
  Report Type: Spontaneous
  Country: JP (occurrence: JP)
  Receive Date: 20180412
  Receipt Date: 20180412
  Transmission Date: 20180711
  Serious: Yes (Other)
  Sender: FDA-Public Use
  Company Number: JP-PFIZER INC-2018144490

PATIENT
  Sex: Male

DRUGS (1)
  1. SELARA 25MG [Suspect]
     Active Substance: EPLERENONE
     Dosage: UNK
     Route: 048

REACTIONS (2)
  - Arrhythmia [Unknown]
  - Erythema [Unknown]
